FAERS Safety Report 9135900 (Version 1)
Quarter: 2013Q1

REPORT INFORMATION
  Report Type: Spontaneous
  Country: US (occurrence: US)
  Receive Date: 20130219
  Receipt Date: 20130219
  Transmission Date: 20140127
  Serious: No
  Sender: FDA-Public Use
  Company Number: US-BRISTOL-MYERS SQUIBB COMPANY-17127077

PATIENT
  Age: 82 Year
  Sex: Female
  Weight: 58.5 kg

DRUGS (4)
  1. ORENCIA [Suspect]
     Indication: RHEUMATOID ARTHRITIS
     Dosage: LAST INF:5NOV12
     Route: 042
     Dates: start: 201206, end: 201211
  2. CRESTOR [Concomitant]
  3. AMBIEN [Concomitant]
  4. ADVAIR [Concomitant]

REACTIONS (3)
  - Asthma [Recovering/Resolving]
  - Dry mouth [Not Recovered/Not Resolved]
  - Dry eye [Not Recovered/Not Resolved]
